FAERS Safety Report 20040657 (Version 1)
Quarter: 2021Q4

REPORT INFORMATION
  Report Type: Spontaneous
  Country: US (occurrence: None)
  Receive Date: 20211105
  Receipt Date: 20211105
  Transmission Date: 20220303
  Serious: No
  Sender: FDA-Public Use
  Company Number: None

PATIENT
  Sex: Male
  Weight: 90.72 kg

DRUGS (7)
  1. CAPECITABINE [Suspect]
     Active Substance: CAPECITABINE
     Indication: Rectosigmoid cancer
     Dosage: FREQUENCY : TWICE A DAY;?
     Route: 048
     Dates: end: 20211105
  2. CAPECITABINE [Suspect]
     Active Substance: CAPECITABINE
     Indication: Rectosigmoid cancer
     Dosage: FREQUENCY : TWICE A DAY;?
     Route: 048
     Dates: end: 20211105
  3. METOPROLOL [Concomitant]
     Active Substance: METOPROLOL
  4. NIFEDIPINE [Concomitant]
     Active Substance: NIFEDIPINE
  5. IRBESARTAN [Concomitant]
     Active Substance: IRBESARTAN
  6. GABAPENTIN [Concomitant]
     Active Substance: GABAPENTIN
  7. DIPHENOXLATE-ATROPINE [Concomitant]

REACTIONS (1)
  - Skin abrasion [None]
